FAERS Safety Report 7440250-3 (Version None)
Quarter: 2011Q2

REPORT INFORMATION
  Report Type: 
  Country: None (occurrence: None)
  Receive Date: 20110427
  Receipt Date: 20100601
  Transmission Date: 20111010
  Serious: Yes (Other)
  Sender: FDA-Public Use
  Company Number: US-PFIZER INC-2010068678

PATIENT
  Age: 9 Year
  Sex: Female

DRUGS (1)
  1. ZITHROMAX [Suspect]
     Route: 030

REACTIONS (7)
  - EXTRAVASATION [None]
  - RASH ERYTHEMATOUS [None]
  - SKIN DISCOLOURATION [None]
  - ERYTHEMA [None]
  - DRUG ADMINISTRATION ERROR [None]
  - INJECTION SITE PAIN [None]
  - SWELLING [None]
